FAERS Safety Report 10081626 (Version 2)
Quarter: 2014Q2

REPORT INFORMATION
  Report Type: Spontaneous
  Country: US (occurrence: US)
  Receive Date: 20140416
  Receipt Date: 20140501
  Transmission Date: 20141212
  Serious: No
  Sender: FDA-Public Use
  Company Number: US-PFIZER INC-2014103859

PATIENT
  Age: 77 Year
  Sex: Female
  Weight: 50 kg

DRUGS (7)
  1. PREMARIN [Suspect]
     Indication: OESTROGEN REPLACEMENT THERAPY
     Dosage: 0.625 MG, DAILY
     Route: 048
     Dates: start: 1989, end: 201310
  2. PREMARIN [Suspect]
     Dosage: 0.625 MG, DAILY
     Route: 048
  3. DIOVAN (VALSARTAN) [Concomitant]
     Indication: BLOOD PRESSURE ABNORMAL
     Dosage: 80 MG, DAILY
  4. CLONAZEPAM [Concomitant]
     Indication: ANXIETY
     Dosage: 1 MG, TID AS NEEDED
  5. NASONEX [Concomitant]
     Dosage: 1 DF, AS NEEDED (1 SNIFF DAILY PRN)
     Route: 045
  6. ACTONEL [Concomitant]
     Dosage: 35 MG, WEEKLY
  7. REMERON [Concomitant]
     Dosage: 30 1/2 TAB HS

REACTIONS (8)
  - Musculoskeletal pain [Unknown]
  - Pain in extremity [Unknown]
  - Middle insomnia [Unknown]
  - Arthropathy [Unknown]
  - Pain [Unknown]
  - Urine odour abnormal [Unknown]
  - Fatigue [Unknown]
  - Product quality issue [Unknown]
